FAERS Safety Report 13402530 (Version 1)
Quarter: 2017Q2

REPORT INFORMATION
  Report Type: Spontaneous
  Country: HU (occurrence: HU)
  Receive Date: 20170404
  Receipt Date: 20170404
  Transmission Date: 20170830
  Serious: Yes (Hospitalization)
  Sender: FDA-Public Use
  Company Number: HU-ELI_LILLY_AND_COMPANY-HU201703011661

PATIENT
  Age: 87 Year
  Sex: Female

DRUGS (8)
  1. AMLODIPIN                          /00972401/ [Concomitant]
     Active Substance: AMLODIPINE BESYLATE
     Dosage: 5 MG, QD
  2. WARFARIN [Concomitant]
     Active Substance: WARFARIN
     Dosage: 1.5 MG, UNKNOWN
  3. PERINDOPRIL [Concomitant]
     Active Substance: PERINDOPRIL
     Dosage: UNK, QD
  4. VALSACOR [Concomitant]
     Active Substance: VALSARTAN
     Dosage: 80 MG, QD
  5. OMEPRAZOL                          /00661201/ [Concomitant]
     Active Substance: OMEPRAZOLE
     Dosage: 20 MG, UNKNOWN
  6. FORSTEO [Suspect]
     Active Substance: TERIPARATIDE
     Indication: PRODUCT USED FOR UNKNOWN INDICATION
     Dosage: UNK
     Route: 065
     Dates: start: 201609
  7. METOPROLOL. [Concomitant]
     Active Substance: METOPROLOL
     Dosage: 50 MG, UNKNOWN
  8. BETOPIC                            /00008501/ [Concomitant]
     Dosage: 2 MG, BID

REACTIONS (2)
  - Glomerular filtration rate decreased [Unknown]
  - Renal failure [Unknown]

NARRATIVE: CASE EVENT DATE: 201609
